FAERS Safety Report 5006242-9 (Version None)
Quarter: 2006Q1

REPORT INFORMATION
  Report Type: 
  Country: None (occurrence: None)
  Receive Date: 20060327
  Receipt Date: 20060117
  Transmission Date: 20060701
  Serious: No
  Sender: FDA-Public Use
  Company Number: 221188

PATIENT
  Age: 55 Year
  Sex: Male
  Weight: 79.4 kg

DRUGS (2)
  1. AVASTIN [Suspect]
     Indication: RENAL CELL CARCINOMA STAGE UNSPECIFIED
     Dosage: 750 MG, Q2W, INTRAVENOUS
     Route: 042
     Dates: start: 20050926
  2. TARCEVA [Concomitant]

REACTIONS (1)
  - BLOOD URIC ACID INCREASED [None]
